FAERS Safety Report 10150245 (Version 1)
Quarter: 2014Q2

REPORT INFORMATION
  Report Type: Spontaneous
  Country: US (occurrence: None)
  Receive Date: 20140501
  Receipt Date: 20140501
  Transmission Date: 20141212
  Serious: Yes (Hospitalization)
  Sender: FDA-Public Use
  Company Number: None

PATIENT
  Age: 79 Year
  Sex: Male

DRUGS (4)
  1. NIFEDIPINE [Suspect]
     Indication: HYPERTENSION
     Route: 048
     Dates: start: 20131010
  2. DEXAMETHASONE [Concomitant]
  3. TERAZOSIN [Concomitant]
  4. BICALUTAMIDE [Concomitant]

REACTIONS (1)
  - Oedema peripheral [None]
